FAERS Safety Report 8871046 (Version 1)
Quarter: 2012Q4

REPORT INFORMATION
  Report Type: 
  Country: US (occurrence: US)
  Receive Date: 20121026
  Receipt Date: 20121026
  Transmission Date: 20130627
  Serious: No
  Sender: FDA-Public Use
  Company Number: US-AMGEN-USASP2012046539

PATIENT
  Sex: Female
  Weight: 35.83 kg

DRUGS (13)
  1. ENBREL [Suspect]
     Indication: PRODUCT USED FOR UNKNOWN INDICATION
     Dosage: 50 mg, qwk
     Route: 058
  2. KLONOPIN [Concomitant]
     Dosage: 0.5 mg, UNK
  3. ZOCOR [Concomitant]
     Dosage: 5 mg, UNK
  4. FOSAMAX [Concomitant]
     Dosage: 5 mg, UNK
  5. AZULFIDINE [Concomitant]
     Dosage: 500 mg, UNK
  6. METHOTREXATE [Concomitant]
     Dosage: 2.5 mg, UNK
  7. NEURONTIN [Concomitant]
     Dosage: 100 mg, UNK
  8. PRILOSEC                           /00661201/ [Concomitant]
     Dosage: 10 mg, UNK
  9. CELEXA                             /00582602/ [Concomitant]
     Dosage: 10 mg, UNK
  10. CALCIUM [Concomitant]
     Dosage: 500 UNK, UNK
  11. FOLIC ACID [Concomitant]
     Dosage: UNK
  12. TYLENOL /00020001/ [Concomitant]
     Dosage: 500 mg, UNK
  13. PROLIA [Concomitant]
     Dosage: 60 mg/ml, UNK

REACTIONS (1)
  - Injection site bruising [Unknown]
